FAERS Safety Report 4850848-4 (Version None)
Quarter: 2005Q4

REPORT INFORMATION
  Report Type: 
  Country: None (occurrence: None)
  Receive Date: 20051208
  Receipt Date: 20051121
  Transmission Date: 20060501
  Serious: Yes (Disabling)
  Sender: FDA-Public Use
  Company Number: EWC051147192

PATIENT
  Age: 52 Year
  Sex: Male

DRUGS (1)
  1. GEMZAR [Suspect]
     Indication: PANCREATIC CARCINOMA
     Dates: start: 20051011

REACTIONS (4)
  - DEHYDRATION [None]
  - MUSCLE SPASMS [None]
  - NAUSEA [None]
  - SPINAL COLUMN STENOSIS [None]
